FAERS Safety Report 6888512-2 (Version None)
Quarter: 2010Q3

REPORT INFORMATION
  Report Type: 
  Country: None (occurrence: None)
  Receive Date: 20100730
  Receipt Date: 20100719
  Transmission Date: 20110219
  Serious: Yes (Other)
  Sender: FDA-Public Use
  Company Number: PHHY2010MX47377

PATIENT
  Age: 75 Year
  Sex: Female

DRUGS (7)
  1. ACLASTA [Suspect]
     Indication: OSTEOPOROSIS
     Dosage: 5 MG / 100 ML/ YEAR
     Route: 042
     Dates: start: 20080301
  2. PIOGLITAZONE [Concomitant]
     Dosage: 1 TABLET DAILY
     Route: 048
     Dates: start: 20090701
  3. METFORMIN HCL [Concomitant]
     Dosage: 1 TABLET DAILY
     Route: 048
     Dates: start: 20090701
  4. INSULIN [Concomitant]
     Dosage: UNK
     Dates: start: 20090701
  5. LOSARTAN POSTASSIUM [Concomitant]
     Dosage: 2 TABLET DAILY
     Route: 048
     Dates: start: 20090701
  6. AMLODIPINE [Concomitant]
     Dosage: 2 TABLET DAILY
     Route: 048
     Dates: start: 20090701
  7. METOPROLOL TARTRATE [Concomitant]
     Dosage: 2 TABLET DAILY
     Route: 048

REACTIONS (1)
  - SPINAL FRACTURE [None]
